FAERS Safety Report 16855607 (Version 1)
Quarter: 2019Q4

REPORT INFORMATION
  Report Type: Spontaneous
  Country: US (occurrence: US)
  Receive Date: 20190926
  Receipt Date: 20190926
  Transmission Date: 20200122
  Serious: Yes (Hospitalization)
  Sender: FDA-Public Use
  Company Number: None

PATIENT
  Sex: Male

DRUGS (13)
  1. HYDROCO/APAP [Concomitant]
     Active Substance: ACETAMINOPHEN\HYDROCODONE
  2. ASPIRIN. [Concomitant]
     Active Substance: ASPIRIN
  3. CELECOXIB. [Concomitant]
     Active Substance: CELECOXIB
  4. LYRICA [Concomitant]
     Active Substance: PREGABALIN
  5. METHOTREXATE. [Concomitant]
     Active Substance: METHOTREXATE
  6. MIDODRINE [Concomitant]
     Active Substance: MIDODRINE
  7. ZOLPIDEM [Concomitant]
     Active Substance: ZOLPIDEM TARTRATE
  8. HUMIRA [Suspect]
     Active Substance: ADALIMUMAB
     Indication: RHEUMATOID ARTHRITIS
     Dosage: ?          OTHER FREQUENCY:QOW;?
     Route: 058
     Dates: start: 20190419
  9. GABAPENTIN. [Concomitant]
     Active Substance: GABAPENTIN
  10. OXYCODONE [Concomitant]
     Active Substance: OXYCODONE
  11. VITAMIN D3 [Concomitant]
     Active Substance: CHOLECALCIFEROL
  12. ACETAMIN [Concomitant]
     Active Substance: ACETAMINOPHEN
  13. ORPHENADRINE [Concomitant]
     Active Substance: ORPHENADRINE

REACTIONS (2)
  - Therapy cessation [None]
  - Hip arthroplasty [None]
